FAERS Safety Report 16714741 (Version 1)
Quarter: 2019Q3

REPORT INFORMATION
  Report Type: Spontaneous
  Country: US (occurrence: US)
  Receive Date: 20190819
  Receipt Date: 20190819
  Transmission Date: 20191004
  Serious: Yes (Other)
  Sender: FDA-Public Use
  Company Number: PHHY2019US188034

PATIENT
  Age: 62 Year
  Sex: Male

DRUGS (2)
  1. RITUXIMAB. [Suspect]
     Active Substance: RITUXIMAB
     Indication: WALDENSTROM^S MACROGLOBULINAEMIA
     Dosage: SINGLE DOSE
     Route: 065
  2. METHOTREXATE. [Suspect]
     Active Substance: METHOTREXATE
     Indication: BING-NEEL SYNDROME
     Dosage: UNK, FOLLOWED BY HIGH-DOSE
     Route: 037

REACTIONS (2)
  - Product use in unapproved indication [Unknown]
  - Acute kidney injury [Unknown]
